FAERS Safety Report 11742908 (Version 5)
Quarter: 2016Q1

REPORT INFORMATION
  Report Type: Spontaneous
  Country: FR (occurrence: FR)
  Receive Date: 20151116
  Receipt Date: 20160208
  Transmission Date: 20160525
  Serious: Yes (Hospitalization)
  Sender: FDA-Public Use
  Company Number: FR-SA-2015SA178558

PATIENT
  Age: 84 Year
  Sex: Male

DRUGS (17)
  1. ETHAMBUTOL [Suspect]
     Active Substance: ETHAMBUTOL HYDROCHLORIDE
     Route: 048
     Dates: start: 20150901, end: 20150914
  2. TIMOFEROL [Concomitant]
     Active Substance: ASCORBIC ACID\FERROUS SULFATE
     Dosage: STRENGTH: 50 (UNIT NOT REPORTED)
  3. FOLIC ACID. [Concomitant]
     Active Substance: FOLIC ACID
  4. SPIRIVA [Concomitant]
     Active Substance: TIOTROPIUM BROMIDE MONOHYDRATE
     Route: 055
  5. APROVEL [Concomitant]
     Active Substance: IRBESARTAN
  6. LASILIX [Concomitant]
     Active Substance: FUROSEMIDE
  7. BRICANYL [Concomitant]
     Active Substance: TERBUTALINE SULFATE
  8. MONICOR [Concomitant]
     Active Substance: ISOSORBIDE MONONITRATE
  9. MONO-TILDIEM LP [Concomitant]
     Active Substance: DILTIAZEM
     Dosage: DOSE:300
  10. ESOMEPRAZOLE [Concomitant]
     Active Substance: ESOMEPRAZOLE
  11. METFORMIN [Concomitant]
     Active Substance: METFORMIN HYDROCHLORIDE
  12. CLARITIN [Concomitant]
     Active Substance: LORATADINE
     Dosage: DOSE: 1 (UNITS NOT REPORTED)
  13. SERETIDE [Concomitant]
     Active Substance: FLUTICASONE FUROATE\SALMETEROL XINAFOATE
     Dosage: 500 MG X2 PUFFS/DAY
  14. RIFATER [Suspect]
     Active Substance: ISONIAZID\PYRAZINAMIDE\RIFAMPIN
     Route: 048
     Dates: start: 20150901, end: 20150914
  15. DIFFU K [Concomitant]
     Active Substance: POTASSIUM CHLORIDE
  16. KARDEGIC [Concomitant]
     Active Substance: ASPIRIN LYSINE
  17. FLUVASTATIN [Concomitant]
     Active Substance: FLUVASTATIN SODIUM

REACTIONS (7)
  - Pyrexia [Unknown]
  - Pruritus [Recovered/Resolved]
  - Face oedema [Recovered/Resolved]
  - Aphthous ulcer [Recovered/Resolved]
  - Lymphadenopathy [Recovered/Resolved]
  - Lymphadenopathy [Unknown]
  - Rash maculo-papular [Recovered/Resolved]

NARRATIVE: CASE EVENT DATE: 20150912
